FAERS Safety Report 7707535-4 (Version None)
Quarter: 2011Q3

REPORT INFORMATION
  Report Type: 
  Country: None (occurrence: None)
  Receive Date: 20110824
  Receipt Date: 20110817
  Transmission Date: 20111222
  Serious: Yes (Other)
  Sender: FDA-Public Use
  Company Number: CA-JNJFOC-20110808903

PATIENT
  Sex: Male
  Weight: 104 kg

DRUGS (5)
  1. PERINDOPRIL ERBUMINE [Concomitant]
  2. NAPROXEN [Concomitant]
  3. REMICADE [Suspect]
     Route: 042
     Dates: start: 20110706, end: 20110817
  4. NEXIUM [Concomitant]
  5. REMICADE [Suspect]
     Indication: ANKYLOSING SPONDYLITIS
     Route: 042
     Dates: start: 20090919

REACTIONS (3)
  - STAPHYLOCOCCAL INFECTION [None]
  - ABASIA [None]
  - ECZEMA [None]
